FAERS Safety Report 24580854 (Version 1)
Quarter: 2024Q4

REPORT INFORMATION
  Report Type: Spontaneous
  Country: US (occurrence: None)
  Receive Date: 20241105
  Receipt Date: 20241105
  Transmission Date: 20250115
  Serious: Yes (Hospitalization)
  Sender: Public
  Company Number: None

PATIENT
  Age: 45 Year
  Sex: Female
  Weight: 57.15 kg

DRUGS (1)
  1. HALOPERIDOL [Suspect]
     Active Substance: HALOPERIDOL
     Indication: Psychotic disorder
     Dosage: FREQUENCY : TWICE A DAY;?
     Route: 030
     Dates: start: 20241022, end: 20241026

REACTIONS (5)
  - Dystonia [None]
  - Product dosage form issue [None]
  - Torticollis [None]
  - Salivary hypersecretion [None]
  - Trismus [None]

NARRATIVE: CASE EVENT DATE: 20241026
